FAERS Safety Report 9350964 (Version 1)
Quarter: 2013Q2

REPORT INFORMATION
  Report Type: Spontaneous
  Country: US (occurrence: US)
  Receive Date: 20130617
  Receipt Date: 20130617
  Transmission Date: 20140414
  Serious: Yes (Hospitalization)
  Sender: FDA-Public Use
  Company Number: US-SANOFI-AVENTIS-2013SA060036

PATIENT
  Age: 78 Year
  Sex: Male

DRUGS (4)
  1. BCG VACCINE [Suspect]
     Indication: BLADDER CANCER
     Dosage: 15 WEEKLY INSTILLATIONS
     Route: 043
  2. ETHAMBUTOL [Suspect]
     Indication: BOVINE TUBERCULOSIS
     Route: 065
  3. ISONIAZID [Suspect]
     Indication: BOVINE TUBERCULOSIS
     Route: 065
  4. RIFAMPICIN [Suspect]
     Indication: BOVINE TUBERCULOSIS
     Route: 065

REACTIONS (12)
  - Bovine tuberculosis [Recovering/Resolving]
  - Pyrexia [Recovered/Resolved]
  - Decreased appetite [Recovering/Resolving]
  - Weight decreased [Recovering/Resolving]
  - Malaise [Recovering/Resolving]
  - Cough [Recovering/Resolving]
  - Blood pressure increased [Recovering/Resolving]
  - Heart rate increased [Recovering/Resolving]
  - Pancytopenia [Recovered/Resolved]
  - Blood alkaline phosphatase increased [Recovered/Resolved]
  - Pallor [Recovering/Resolving]
  - Transaminases increased [Unknown]
